FAERS Safety Report 4523822-5 (Version None)
Quarter: 2004Q4

REPORT INFORMATION
  Report Type: 
  Country: None (occurrence: None)
  Receive Date: 20041210
  Receipt Date: 20041210
  Transmission Date: 20050328
  Serious: Yes (Hospitalization)
  Sender: FDA-Public Use
  Company Number: None

PATIENT
  Age: 13 Year
  Sex: Female
  Weight: 54.4316 kg

DRUGS (4)
  1. MINOCYCLINE HCL [Suspect]
     Indication: ACNE
     Dosage: 50MG  DAILY
     Dates: start: 20040901, end: 20041105
  2. NEURONTIN [Concomitant]
  3. ACIPHEX [Concomitant]
  4. ELAVIL [Concomitant]

REACTIONS (4)
  - ANXIETY [None]
  - CONVULSION [None]
  - DEPRESSED LEVEL OF CONSCIOUSNESS [None]
  - THINKING ABNORMAL [None]
